FAERS Safety Report 9309081 (Version 1)
Quarter: 2013Q2

REPORT INFORMATION
  Report Type: Spontaneous
  Country: US (occurrence: US)
  Receive Date: 20130525
  Receipt Date: 20130525
  Transmission Date: 20140414
  Serious: Yes (Other)
  Sender: FDA-Public Use
  Company Number: CHPA2013US008462

PATIENT
  Age: 31 Year
  Sex: Male

DRUGS (4)
  1. VOLTAREN GEL [Suspect]
     Indication: MUSCLE INJURY
     Dosage: 1 G, 1-2 TIMES A DAY, 3-4 TIMES A WEEK
     Route: 061
  2. FLEXERIL [Concomitant]
  3. NAPROSYN [Concomitant]
     Dosage: UNK, PRN
  4. CORTISONE [Concomitant]
     Dosage: 1 DF, UNK

REACTIONS (5)
  - Joint swelling [Not Recovered/Not Resolved]
  - Local swelling [Not Recovered/Not Resolved]
  - Off label use [Unknown]
  - Therapeutic response unexpected [Unknown]
  - Drug administered at inappropriate site [Unknown]
